FAERS Safety Report 9882425 (Version 1)
Quarter: 2014Q1

REPORT INFORMATION
  Report Type: Spontaneous
  Country: GR (occurrence: GR)
  Receive Date: 20140207
  Receipt Date: 20140207
  Transmission Date: 20141002
  Serious: Yes (Other)
  Sender: FDA-Public Use
  Company Number: PHHY2014GR012853

PATIENT
  Age: 25 Year
  Sex: Female

DRUGS (4)
  1. CICLOSPORIN [Suspect]
     Indication: IMMUNOSUPPRESSION
     Dosage: 450 MG, DAILY
  2. PREDNISONE [Suspect]
     Indication: IMMUNOSUPPRESSION
     Dosage: 15 MG, DAILY
  3. AMPICILLIN [Suspect]
     Dosage: 1 G, UNK
     Route: 030
  4. CORTICOSTEROIDS [Suspect]
     Dosage: 25 MG, DAILY

REACTIONS (8)
  - Immunoglobulins increased [Unknown]
  - Thalassaemia trait [Unknown]
  - Haemoglobin decreased [Unknown]
  - Haematocrit decreased [Unknown]
  - Transferrin decreased [Unknown]
  - Complement factor increased [Unknown]
  - Normal newborn [Unknown]
  - Maternal exposure during delivery [Unknown]
